FAERS Safety Report 24453275 (Version 2)
Quarter: 2024Q4

REPORT INFORMATION
  Report Type: Report from Study
  Country: US (occurrence: US)
  Receive Date: 20241017
  Receipt Date: 20241018
  Transmission Date: 20250114
  Serious: No
  Sender: ROCHE
  Company Number: US-ROCHE-3064560

PATIENT
  Age: 27 Year
  Sex: Female

DRUGS (2)
  1. RITUXAN [Suspect]
     Active Substance: RITUXIMAB
     Indication: Myasthenia gravis
     Dosage: INFUSE 1000MG IV WEEKS 0 + 2, REPEAT EVERY 6 MONTHS.
     Route: 041
     Dates: start: 2019
  2. RITUXAN [Suspect]
     Active Substance: RITUXIMAB
     Dosage: INFUSE 1000 MG ON DAY 1 AND DAY 15 THEN EVERY 16 WEEKS
     Route: 041

REACTIONS (3)
  - Off label use [Unknown]
  - Malaise [Recovered/Resolved]
  - Depression [Recovered/Resolved]

NARRATIVE: CASE EVENT DATE: 20200101
